FAERS Safety Report 9515365 (Version 1)
Quarter: 2013Q3

REPORT INFORMATION
  Report Type: Spontaneous
  Country: FR (occurrence: FR)
  Receive Date: 20130911
  Receipt Date: 20130911
  Transmission Date: 20140515
  Serious: Yes (Other)
  Sender: FDA-Public Use
  Company Number: PHHY2013FR097490

PATIENT
  Age: 51 Year
  Sex: Female

DRUGS (2)
  1. LAMISIL [Suspect]
     Dosage: 250 MG, UNK
     Route: 048
  2. LAMOTRIGINE [Suspect]
     Dosage: 25 MG, DAILY
     Route: 048
     Dates: start: 20130614, end: 20130616

REACTIONS (4)
  - Medication error [Recovered/Resolved]
  - Wrong drug administered [Recovered/Resolved]
  - Somnolence [Recovered/Resolved]
  - Headache [Recovered/Resolved]
